FAERS Safety Report 5115549-6 (Version None)
Quarter: 2006Q3

REPORT INFORMATION
  Report Type: 
  Country: None (occurrence: None)
  Receive Date: 20060925
  Receipt Date: 20060913
  Transmission Date: 20061208
  Serious: Yes (Other)
  Sender: FDA-Public Use
  Company Number: 163-20785-06090620

PATIENT
  Age: 59 Year
  Sex: Male
  Weight: 69.8539 kg

DRUGS (4)
  1. THALOMID [Suspect]
     Indication: MULTIPLE MYELOMA
     Dosage: 50 MG, 1 IN 1 D, ORAL; SEE IMAGE
     Route: 048
     Dates: start: 20060516, end: 20060801
  2. THALOMID [Suspect]
     Indication: MULTIPLE MYELOMA
     Dosage: 50 MG, 1 IN 1 D, ORAL; SEE IMAGE
     Route: 048
     Dates: start: 20051209
  3. THALOMID [Suspect]
     Indication: MULTIPLE MYELOMA
     Dosage: 50 MG, 1 IN 1 D, ORAL; SEE IMAGE
     Route: 048
     Dates: start: 20051223
  4. DEXAMETHASONE TAB [Suspect]
     Indication: MULTIPLE MYELOMA

REACTIONS (5)
  - AGITATION [None]
  - ANAEMIA [None]
  - DYSPNOEA [None]
  - EJECTION FRACTION DECREASED [None]
  - PULMONARY HYPERTENSION [None]
